FAERS Safety Report 8148298-0 (Version None)
Quarter: 2012Q1

REPORT INFORMATION
  Report Type: 
  Country: None (occurrence: None)
  Receive Date: 20120218
  Receipt Date: 20110513
  Transmission Date: 20120608
  Serious: No
  Sender: FDA-Public Use
  Company Number: US-ALLERGAN-1106637US

PATIENT
  Age: 42 Year
  Sex: Female

DRUGS (2)
  1. BOTOX COSMETIC [Suspect]
     Indication: SKIN WRINKLING
     Dosage: 24 UNITS, SINGLE
     Route: 030
     Dates: start: 20110513, end: 20110513
  2. DYSPORT [Concomitant]
     Indication: SKIN WRINKLING
     Dosage: UNK

REACTIONS (6)
  - INJECTION SITE URTICARIA [None]
  - INJECTION SITE ERYTHEMA [None]
  - ANXIETY [None]
  - ANGER [None]
  - CHEST DISCOMFORT [None]
  - THROAT TIGHTNESS [None]
